FAERS Safety Report 25659803 (Version 1)
Quarter: 2025Q3

REPORT INFORMATION
  Report Type: Spontaneous
  Country: US (occurrence: US)
  Receive Date: 20250808
  Receipt Date: 20250808
  Transmission Date: 20251021
  Serious: No
  Sender: ITALFARMACO SPA
  Company Number: US-ITALFARMACO SPA-2182112

PATIENT
  Age: 83 Year
  Sex: Female
  Weight: 77.098 kg

DRUGS (9)
  1. TIGLUTIK [Suspect]
     Active Substance: RILUZOLE
     Indication: Amyotrophic lateral sclerosis
     Dates: start: 20200929
  2. XANAX [Concomitant]
     Active Substance: ALPRAZOLAM
  3. TYLENOL [Concomitant]
     Active Substance: ACETAMINOPHEN
  4. MATZIM LA [Concomitant]
     Active Substance: DILTIAZEM HYDROCHLORIDE
  5. LIVALO [Concomitant]
     Active Substance: PITAVASTATIN CALCIUM
  6. LASIX [Concomitant]
     Active Substance: FUROSEMIDE
  7. ELIQUIS [Concomitant]
     Active Substance: APIXABAN
  8. ECONAZOLE NITRATE [Concomitant]
     Active Substance: ECONAZOLE NITRATE
  9. TENORMIN [Concomitant]
     Active Substance: ATENOLOL

REACTIONS (1)
  - Dry mouth [Not Recovered/Not Resolved]
